FAERS Safety Report 4777812-8 (Version None)
Quarter: 2005Q3

REPORT INFORMATION
  Report Type: 
  Country: None (occurrence: None)
  Receive Date: 20050925
  Receipt Date: 20050914
  Transmission Date: 20060218
  Serious: Yes (Death)
  Sender: FDA-Public Use
  Company Number: US-JNJFOC-20030702175

PATIENT
  Sex: Male
  Weight: 66.68 kg

DRUGS (22)
  1. INFLIXIMAB [Suspect]
     Route: 050
  2. INFLIXIMAB [Suspect]
     Indication: RHEUMATOID ARTHRITIS
     Route: 050
  3. AMIODARONE HCL [Concomitant]
     Dosage: 5 DAYS PER WEEK
  4. CAPOTEN [Concomitant]
  5. LANOXIN [Concomitant]
  6. LASIX [Concomitant]
  7. K-DUR 10 [Concomitant]
  8. PREDNISONE [Concomitant]
  9. METHOTREXATE [Concomitant]
  10. FOLIC ACID [Concomitant]
  11. PEPCID [Concomitant]
  12. METHADONE HCL [Concomitant]
  13. ANEMAGEN [Concomitant]
  14. MULTIVITAMIN [Concomitant]
  15. MULTIVITAMIN [Concomitant]
  16. MULTIVITAMIN [Concomitant]
  17. MULTIVITAMIN [Concomitant]
  18. MULTIVITAMIN [Concomitant]
  19. MULTIVITAMIN [Concomitant]
  20. MULTIVITAMIN [Concomitant]
  21. MULTIVITAMIN [Concomitant]
  22. AZOPT [Concomitant]

REACTIONS (1)
  - RESPIRATORY FAILURE [None]
